FAERS Safety Report 5738731-3 (Version None)
Quarter: 2008Q2

REPORT INFORMATION
  Report Type: 
  Country: None (occurrence: None)
  Receive Date: 20080512
  Receipt Date: 20080512
  Transmission Date: 20081010
  Serious: Yes (Other)
  Sender: FDA-Public Use
  Company Number: None

PATIENT
  Sex: Male
  Weight: 77.1115 kg

DRUGS (3)
  1. BOTOX ALLERGAN [Suspect]
     Indication: ANOXIA
     Dosage: 900 UNITS EVERY 3 MONTHS IM
     Route: 030
     Dates: start: 20070101, end: 20080201
  2. BOTOX ALLERGAN [Suspect]
     Indication: BRAIN INJURY
     Dosage: 900 UNITS EVERY 3 MONTHS IM
     Route: 030
     Dates: start: 20070101, end: 20080201
  3. BOTOX ALLERGAN [Suspect]
     Indication: MUSCLE SPASTICITY
     Dosage: 900 UNITS EVERY 3 MONTHS IM
     Route: 030
     Dates: start: 20070101, end: 20080201

REACTIONS (2)
  - DYSPHAGIA [None]
  - SPEECH DISORDER [None]
